FAERS Safety Report 7296983-5 (Version None)
Quarter: 2011Q1

REPORT INFORMATION
  Report Type: 
  Country: None (occurrence: None)
  Receive Date: 20110216
  Receipt Date: 20110207
  Transmission Date: 20110831
  Serious: Yes (Other)
  Sender: FDA-Public Use
  Company Number: BA-ABBOTT-11P-211-0703344-00

PATIENT
  Age: 60 Year
  Sex: Female

DRUGS (8)
  1. AMITRIPTYLINE HYDROCHLORIDE [Suspect]
     Indication: DEPRESSION
     Dosage: DAILY
     Route: 065
  2. LISINOPRIL [Suspect]
     Indication: HYPERTENSION
     Dosage: DAILY
     Route: 065
  3. VALPROATE SODIUM [Suspect]
     Indication: DEPRESSION
     Dosage: DAILY
     Route: 065
  4. HYDROCHLOROTHIAZIDE [Suspect]
     Indication: HYPERTENSION
     Dosage: DAILY
  5. HYDROCHLOROTHIAZIDE [Suspect]
     Dosage: DAILY
  6. ENALAPRIL [Interacting]
     Indication: HYPERTENSION
     Dosage: DAILY
     Route: 065
  7. AMLODIPINE [Interacting]
     Indication: HYPERTENSION
     Dosage: DAILY
     Route: 065
  8. LEVOMEPROMAZINE [Suspect]
     Indication: DEPRESSION
     Dosage: DAILY
     Route: 065

REACTIONS (2)
  - DELIRIUM [None]
  - DRUG INTERACTION [None]
